FAERS Safety Report 4334809-X (Version None)
Quarter: 2004Q2

REPORT INFORMATION
  Report Type: 
  Country: None (occurrence: None)
  Receive Date: 20040407
  Receipt Date: 20040407
  Transmission Date: 20050107
  Serious: No
  Sender: FDA-Public Use
  Company Number: None

PATIENT
  Age: 47 Year
  Sex: Male
  Weight: 66.2252 kg

DRUGS (14)
  1. VORICONAZOLE 200 MG PO QD [Suspect]
     Indication: FUNGAL INFECTION
     Dosage: 200 MG PO QD
     Route: 048
     Dates: start: 20031122, end: 20031127
  2. VORICONAZOLE 200 MG PO QD [Suspect]
     Indication: PROPHYLAXIS
     Dosage: 200 MG PO QD
     Route: 048
     Dates: start: 20031122, end: 20031127
  3. ACYCLOVIR [Concomitant]
  4. GENTAMICIN [Concomitant]
  5. LEVOFLOXACIN [Concomitant]
  6. LANSOPRAZOLE [Concomitant]
  7. FILGRASTIM [Concomitant]
  8. OXYCODONE [Concomitant]
  9. CYCLOSPORINE [Concomitant]
  10. ONDANSERTRON [Concomitant]
  11. PROMETHROZINE [Concomitant]
  12. MG OXIDE [Concomitant]
  13. DOCUSATE [Concomitant]
  14. LORAZEPAM [Concomitant]

REACTIONS (2)
  - BLOOD BILIRUBIN INCREASED [None]
  - LIVER FUNCTION TEST ABNORMAL [None]
